FAERS Safety Report 20903147 (Version 3)
Quarter: 2022Q2

REPORT INFORMATION
  Report Type: Report from Study
  Country: BE (occurrence: BE)
  Receive Date: 20220601
  Receipt Date: 20220629
  Transmission Date: 20220721
  Serious: Yes (Hospitalization)
  Sender: FDA-Public Use
  Company Number: BE-JNJFOC-20220549600

PATIENT
  Age: 54 Year
  Sex: Female
  Weight: 56 kg

DRUGS (19)
  1. AMIVANTAMAB [Suspect]
     Active Substance: AMIVANTAMAB
     Indication: Non-small cell lung cancer
     Route: 042
     Dates: start: 20220208, end: 20220502
  2. CARBOPLATIN [Concomitant]
     Active Substance: CARBOPLATIN
     Indication: Non-small cell lung cancer
     Dosage: AUC 5 IV
     Route: 042
     Dates: start: 20220208, end: 20220411
  3. PEMETREXED [Concomitant]
     Active Substance: PEMETREXED
     Indication: Non-small cell lung cancer
     Route: 042
     Dates: start: 20220208, end: 20220411
  4. YAS ANTICONCEPTION [Concomitant]
     Indication: Contraception
     Route: 048
     Dates: start: 19860101
  5. ACETAMINOPHEN\CODEINE PHOSPHATE [Concomitant]
     Active Substance: ACETAMINOPHEN\CODEINE PHOSPHATE
     Indication: Cough
     Route: 048
     Dates: start: 20220124
  6. LITICAN [ALIZAPRIDE] [Concomitant]
     Indication: Nausea
     Route: 048
     Dates: start: 20220214
  7. ACETAMINOPHEN [Concomitant]
     Active Substance: ACETAMINOPHEN
     Indication: Pain
     Route: 048
     Dates: start: 20220215
  8. METRONIDAZOLE [Concomitant]
     Active Substance: METRONIDAZOLE
     Indication: Rash
     Dosage: UNIT DOSE 1 UNSPECIFIED UNIT
     Route: 061
     Dates: start: 20220221
  9. MINOCYCLINE [Concomitant]
     Active Substance: MINOCYCLINE HYDROCHLORIDE
     Indication: Rash
     Route: 048
     Dates: start: 20220221
  10. MINOCYCLINE [Concomitant]
     Active Substance: MINOCYCLINE HYDROCHLORIDE
     Indication: Paronychia
     Route: 048
     Dates: start: 20220419
  11. MOVICOL [Concomitant]
     Active Substance: POLYETHYLENE GLYCOL 3350\POTASSIUM CHLORIDE\SODIUM BICARBONATE\SODIUM CHLORIDE
     Indication: Constipation
     Dosage: UNIT DOSE 1 UNSPECIFIED UNITS
     Route: 048
     Dates: start: 20220308
  12. POVIDONE-IODINE [Concomitant]
     Active Substance: POVIDONE-IODINE
     Indication: Paronychia
     Dosage: UNIT DOSE 1 UNSPECIFIED UNITS
     Route: 061
     Dates: start: 20220321
  13. EDOXABAN TOSYLATE [Concomitant]
     Active Substance: EDOXABAN TOSYLATE
     Indication: Deep vein thrombosis
     Route: 048
     Dates: start: 20220419
  14. EDOXABAN TOSYLATE [Concomitant]
     Active Substance: EDOXABAN TOSYLATE
     Indication: Pulmonary embolism
  15. DIPROSONE [Concomitant]
     Active Substance: BETAMETHASONE DIPROPIONATE
     Indication: Rash
     Dosage: UNIT DOSE 1 UNSPECIFIED UNIT
     Route: 061
     Dates: start: 20220419
  16. SALICYLIC ACID [Concomitant]
     Active Substance: SALICYLIC ACID
     Indication: Rash
     Dosage: IN VASELINE, UNIT DOSE 1 UNSPECIFIED UNIT
     Route: 061
     Dates: start: 20220419
  17. MAGNESIUM CITRATE [Concomitant]
     Active Substance: MAGNESIUM CITRATE
     Indication: Prophylaxis
     Route: 048
     Dates: start: 20220419
  18. BETAMETHASONE VALERATE\FUSIDIC ACID [Concomitant]
     Active Substance: BETAMETHASONE VALERATE\FUSIDIC ACID
     Indication: Paronychia
     Dosage: UNIT DOSE 1 UNSPECIFIED UNITS
     Route: 061
     Dates: start: 20220419
  19. POVIDONE-IODINE [Concomitant]
     Active Substance: POVIDONE-IODINE
     Indication: Paronychia
     Dosage: UNIT DOSE 1 UNSPECIFIED UNITS
     Route: 061
     Dates: start: 20220419

REACTIONS (2)
  - Erysipelas [Not Recovered/Not Resolved]
  - Paronychia [Unknown]

NARRATIVE: CASE EVENT DATE: 20220521
